FAERS Safety Report 8076240-X (Version None)
Quarter: 2012Q1

REPORT INFORMATION
  Report Type: 
  Country: None (occurrence: None)
  Receive Date: 20120125
  Receipt Date: 20120125
  Transmission Date: 20120608
  Serious: Yes (Hospitalization)
  Sender: FDA-Public Use
  Company Number: None

PATIENT
  Age: 80 Year
  Sex: Male
  Weight: 71.6 kg

DRUGS (1)
  1. CARBOPLATIN [Suspect]
     Indication: LUNG NEOPLASM MALIGNANT
     Dosage: 425 MG ONCE IV
     Route: 042
     Dates: start: 20120103, end: 20120103

REACTIONS (1)
  - FEBRILE NEUTROPENIA [None]
